FAERS Safety Report 4509124-1 (Version None)
Quarter: 2004Q4

REPORT INFORMATION
  Report Type: 
  Country: None (occurrence: None)
  Receive Date: 20041025
  Receipt Date: 20040209
  Transmission Date: 20050328
  Serious: Yes (Hospitalization)
  Sender: FDA-Public Use
  Company Number: NSADSS2003022065

PATIENT
  Age: 43 Year
  Sex: Female
  Weight: 113.3993 kg

DRUGS (17)
  1. REMICADE [Suspect]
     Indication: CROHN'S DISEASE
     Dosage: 85 MG, 1 IN 1 AS NECESSARY, INTRAVENOUS DRIP
     Route: 041
     Dates: start: 20030502, end: 20030502
  2. REMICADE [Suspect]
     Dosage: 575 MG, INTRAVENOUS DRIP
     Route: 041
     Dates: start: 20030221, end: 20030221
  3. REMICADE [Suspect]
     Dosage: 575 MG, INTRAVENOUS DRIP
     Route: 041
     Dates: start: 20030522
  4. MEDROL DOSEPAK (METHYLPREDNISOLONE) [Concomitant]
  5. BENADRYL [Concomitant]
  6. TYLENOL [Concomitant]
  7. SOLU-CORTEF [Concomitant]
  8. ASACOL [Concomitant]
  9. IMURAN [Concomitant]
  10. BENTUM (ALL OTHER THERAPEUTIC PRODUCTS) [Concomitant]
  11. PREDNISONE [Concomitant]
  12. BENTYL [Concomitant]
  13. ATENOLOL [Concomitant]
  14. MULTI-VITAMIN (MULTIVITAMINS) [Concomitant]
  15. B-COMPLEX VITAMIN (BECOSYM FORTE) [Concomitant]
  16. ACIPHEX [Concomitant]
  17. NEURONTIN [Concomitant]

REACTIONS (4)
  - ABDOMINAL PAIN [None]
  - HEADACHE [None]
  - HYPERSENSITIVITY [None]
  - PYREXIA [None]
